FAERS Safety Report 8101571-4 (Version None)
Quarter: 2012Q1

REPORT INFORMATION
  Report Type: 
  Country: None (occurrence: None)
  Receive Date: 20120129
  Receipt Date: 20110919
  Transmission Date: 20120608
  Serious: No
  Sender: FDA-Public Use
  Company Number: US-ABBOTT-11P-163-0855932-00

PATIENT
  Sex: Female

DRUGS (4)
  1. HUMIRA [Suspect]
     Indication: RHEUMATOID ARTHRITIS
     Route: 058
     Dates: start: 20110818
  2. METHOTREXATE [Concomitant]
     Indication: INFLAMMATION
     Dosage: 2.5 MGS 8 PILLS A WEEK
  3. INSULIN [Concomitant]
     Indication: DIABETES MELLITUS
  4. MELOXICAM [Concomitant]
     Indication: PRODUCT USED FOR UNKNOWN INDICATION
     Dosage: 1 DAILY

REACTIONS (1)
  - INJECTION SITE PAIN [None]
